FAERS Safety Report 7661526-0 (Version None)
Quarter: 2011Q3

REPORT INFORMATION
  Report Type: 
  Country: None (occurrence: None)
  Receive Date: 20110805
  Receipt Date: 20101018
  Transmission Date: 20111222
  Serious: No
  Sender: FDA-Public Use
  Company Number: US-ABBOTT-10P-163-0679566-00

PATIENT
  Sex: Male
  Weight: 108.96 kg

DRUGS (16)
  1. GLYBURIDE XL [Concomitant]
     Indication: DIABETES MELLITUS
  2. LOVAZA [Concomitant]
     Indication: PRODUCT USED FOR UNKNOWN INDICATION
  3. SKELAXIN [Concomitant]
     Indication: MUSCLE RELAXANT THERAPY
  4. ATIVAN [Concomitant]
     Indication: ANXIETY
  5. UNKNOWN MEDICATION [Concomitant]
     Indication: BLOOD TRIGLYCERIDES INCREASED
  6. GLUCOPHAGE [Concomitant]
     Dosage: 2 EVERY MORNING, 1 AT NOON AND 2 HS
  7. DOLOBID [Concomitant]
     Indication: ARTHRITIS
  8. NIASPAN [Suspect]
     Indication: BLOOD TRIGLYCERIDES INCREASED
     Dates: start: 20100101
  9. ENALAPRIL MALEATE [Concomitant]
     Indication: HYPERTENSION
  10. ASPIRIN [Concomitant]
     Indication: PROPHYLAXIS
  11. VITAMIN D [Concomitant]
     Indication: VITAMIN SUPPLEMENTATION
  12. GLYBURIDE XL [Concomitant]
  13. VICODIN [Concomitant]
     Indication: PAIN
  14. DOLOBID [Concomitant]
     Indication: SURGERY
  15. VITAMIN B-12 [Concomitant]
     Indication: VITAMIN B12 DECREASED
  16. GLUCOPHAGE [Concomitant]
     Indication: DIABETES MELLITUS

REACTIONS (2)
  - GLYCOSYLATED HAEMOGLOBIN INCREASED [None]
  - BLOOD GLUCOSE INCREASED [None]
